FAERS Safety Report 11672729 (Version 1)
Quarter: 2015Q4

REPORT INFORMATION
  Report Type: Spontaneous
  Country: US (occurrence: None)
  Receive Date: 20151026
  Receipt Date: 20151026
  Transmission Date: 20160304
  Serious: No
  Sender: FDA-Public Use
  Company Number: None

PATIENT
  Age: 64 Year
  Sex: Male
  Weight: 103 kg

DRUGS (1)
  1. DABIGATRAN [Suspect]
     Active Substance: DABIGATRAN
     Indication: DEEP VEIN THROMBOSIS
     Route: 048
     Dates: start: 20150429, end: 20150619

REACTIONS (5)
  - Arthralgia [None]
  - Muscle spasms [None]
  - Back pain [None]
  - Myalgia [None]
  - Neck pain [None]

NARRATIVE: CASE EVENT DATE: 20150601
